FAERS Safety Report 8112735 (Version 5)
Quarter: 2025Q1

REPORT INFORMATION
  Report Type: Spontaneous
  Country: US (occurrence: US)
  Receive Date: 20110830
  Receipt Date: 20250222
  Transmission Date: 20250409
  Serious: Yes (Hospitalization, Other)
  Sender: ROCHE
  Company Number: US-ROCHE-798716

PATIENT
  Age: 72 Year
  Sex: Female

DRUGS (3)
  1. BONIVA [Suspect]
     Active Substance: IBANDRONATE SODIUM
     Indication: Osteoporosis
     Route: 065
     Dates: start: 20060926, end: 201001
  2. FOSAMAX [Suspect]
     Active Substance: ALENDRONATE SODIUM
     Indication: Osteoporosis
     Route: 065
     Dates: start: 1998, end: 2001
  3. FOSAMAX [Suspect]
     Active Substance: ALENDRONATE SODIUM
     Route: 065
     Dates: end: 20060926

REACTIONS (13)
  - Femur fracture [Unknown]
  - Low turnover osteopathy [Unknown]
  - Anxiety [Unknown]
  - Emotional distress [Unknown]
  - Depression [Unknown]
  - Joint effusion [Unknown]
  - Meniscus injury [Unknown]
  - Osteoarthritis [Unknown]
  - Bundle branch block left [Unknown]
  - Haemoglobin decreased [Unknown]
  - Nephrocalcinosis [Unknown]
  - Fall [Unknown]
  - Lower urinary tract symptoms [Unknown]

NARRATIVE: CASE EVENT DATE: 20081017
